FAERS Safety Report 17823522 (Version 11)
Quarter: 2021Q1

REPORT INFORMATION
  Report Type: Spontaneous
  Country: US (occurrence: US)
  Receive Date: 20200526
  Receipt Date: 20210309
  Transmission Date: 20210419
  Serious: Yes (Hospitalization, Other)
  Sender: FDA-Public Use
  Company Number: US-TEVA-2020-US-1240302

PATIENT
  Age: 49 Year
  Sex: Female

DRUGS (3)
  1. SYNRIBO [Suspect]
     Active Substance: OMACETAXINE MEPESUCCINATE
     Dosage: (2.5MG/0.71ML) SUBQ, BID FOR 5 DAYS OF 28 DAY CYCLE.
     Route: 058
     Dates: start: 20200515, end: 2020
  2. KEPPRA [Concomitant]
     Active Substance: LEVETIRACETAM
  3. SYNRIBO [Suspect]
     Active Substance: OMACETAXINE MEPESUCCINATE
     Indication: CHRONIC MYELOID LEUKAEMIA
     Dosage: 5 MILLIGRAM DAILY; (2.5MG/0.71ML) SUBQ, BID FOR 14 DAYS OF 28 DAY CYCLE.
     Route: 058
     Dates: start: 20200513

REACTIONS (14)
  - Philadelphia chromosome positive [Unknown]
  - Asthenia [Unknown]
  - Pain [Unknown]
  - Disease progression [Unknown]
  - Injection site bruising [Unknown]
  - Platelet count decreased [Unknown]
  - Neutropenia [Unknown]
  - Injection site pain [Unknown]
  - Hypoacusis [Unknown]
  - Nausea [Recovering/Resolving]
  - Drug ineffective [Unknown]
  - Decreased appetite [Unknown]
  - Balance disorder [Unknown]
  - Panic attack [Recovering/Resolving]

NARRATIVE: CASE EVENT DATE: 2020
